FAERS Safety Report 26000676 (Version 4)
Quarter: 2025Q4

REPORT INFORMATION
  Report Type: Report from Study
  Country: MX (occurrence: MX)
  Receive Date: 20251105
  Receipt Date: 20251202
  Transmission Date: 20260118
  Serious: Yes (Hospitalization, Other)
  Sender: SANOFI AVENTIS
  Company Number: MX-SA-SAC20220818001737

PATIENT
  Age: 31 Year
  Sex: Male

DRUGS (4)
  1. DUPILUMAB [Suspect]
     Active Substance: DUPILUMAB
     Indication: Dermatitis atopic
     Dosage: 300 MG, QOW
     Route: 058
     Dates: start: 20211217, end: 20211217
  2. DUPILUMAB [Suspect]
     Active Substance: DUPILUMAB
     Dosage: 300 MG, QM
     Route: 058
     Dates: start: 20250908
  3. DEFLAZACORT [Concomitant]
     Active Substance: DEFLAZACORT
     Indication: Inflammation
     Dosage: UNK UNK, BIW
     Route: 048
  4. DEFLAZACORT [Concomitant]
     Active Substance: DEFLAZACORT
     Dosage: UNK UNK, QW
     Route: 048

REACTIONS (18)
  - Epilepsy [Recovering/Resolving]
  - Seizure [Recovering/Resolving]
  - Head injury [Unknown]
  - Hippocampal sclerosis [Recovering/Resolving]
  - Dermatitis exfoliative generalised [Unknown]
  - Urticaria aquagenic [Recovering/Resolving]
  - Gastrointestinal inflammation [Unknown]
  - Pruritus [Unknown]
  - Urticaria [Not Recovered/Not Resolved]
  - Pain [Recovered/Resolved]
  - Fall [Recovering/Resolving]
  - Eye irritation [Unknown]
  - Weight decreased [Unknown]
  - Skin hypopigmentation [Recovered/Resolved]
  - Rash macular [Unknown]
  - Amygdalotomy [Unknown]
  - Off label use [Unknown]
  - Inappropriate schedule of product administration [Unknown]

NARRATIVE: CASE EVENT DATE: 20220812
